FAERS Safety Report 9596818 (Version 2)
Quarter: 2013Q4

REPORT INFORMATION
  Report Type: Spontaneous
  Country: TR (occurrence: TR)
  Receive Date: 20131004
  Receipt Date: 20131015
  Transmission Date: 20140711
  Serious: Yes (Life-Threatening, Disabling, Other)
  Sender: FDA-Public Use
  Company Number: TR-B.I. PHARMACEUTICALS,INC./RIDGEFIELD-2013-BI-30972GD

PATIENT
  Age: 41 Year
  Sex: Female

DRUGS (2)
  1. PRADAXA [Suspect]
     Indication: ANTICOAGULANT THERAPY
     Dosage: 220 MG
     Route: 048
  2. ASPIRIN [Suspect]
     Dosage: 150 MG

REACTIONS (4)
  - Cerebrovascular accident [Unknown]
  - Cardiac valve replacement complication [Recovered/Resolved]
  - Neurological decompensation [Unknown]
  - Loss of consciousness [Recovered/Resolved]
